FAERS Safety Report 7938933-1 (Version None)
Quarter: 2011Q4

REPORT INFORMATION
  Report Type: 
  Country: None (occurrence: None)
  Receive Date: 20111124
  Receipt Date: 20111114
  Transmission Date: 20120403
  Serious: Yes (Death, Hospitalization)
  Sender: FDA-Public Use
  Company Number: JP-AMGEN-JPNCT2011061454

PATIENT
  Age: 72 Year
  Sex: Female
  Weight: 37 kg

DRUGS (32)
  1. ALLOID G [Concomitant]
     Indication: GASTROOESOPHAGEAL REFLUX DISEASE
     Dosage: UNK
     Route: 048
  2. PANITUMUMAB [Suspect]
     Indication: COLORECTAL CANCER
     Dosage: 6 MG/KG, Q2WK
     Route: 041
     Dates: start: 20100908, end: 20100929
  3. LEVOLEUCOVORIN CALCIUM [Concomitant]
     Indication: COLORECTAL CANCER
     Route: 041
     Dates: start: 20100908, end: 20110306
  4. ZOFRAN [Concomitant]
     Dosage: UNK
     Route: 048
  5. EMEND [Concomitant]
     Dosage: UNK
     Route: 048
  6. LOBU [Concomitant]
     Dosage: UNK
     Route: 048
  7. PENTAZOCINE LACTATE [Concomitant]
     Dosage: UNK
     Route: 048
  8. SELBEX [Concomitant]
     Route: 048
  9. LOCOID [Concomitant]
     Dosage: UNK
     Route: 062
  10. FUCIDIN LEO [Concomitant]
     Dosage: UNK
     Route: 062
  11. POLARAMINE [Concomitant]
     Dosage: UNK
     Route: 042
  12. GASMOTIN [Concomitant]
     Indication: GASTROOESOPHAGEAL REFLUX DISEASE
     Dosage: UNK
     Route: 048
  13. PANITUMUMAB [Suspect]
     Dosage: 6 MG/KG, Q2WK
     Route: 041
     Dates: start: 20110209, end: 20110302
  14. PANITUMUMAB [Suspect]
     Dosage: 6 MG/KG, Q2WK
     Route: 041
     Dates: start: 20110330, end: 20110525
  15. IRINOTECAN HYDROCHLORIDE [Concomitant]
     Indication: COLORECTAL CANCER
     Route: 041
     Dates: start: 20100908, end: 20110306
  16. FLUOROURACIL [Concomitant]
     Route: 041
     Dates: start: 20100908, end: 20110306
  17. MYSER [Concomitant]
     Dosage: UNK
     Route: 062
  18. PRIMPERAN TAB [Concomitant]
     Dosage: UNK
     Route: 042
  19. PANCREL [Concomitant]
     Indication: GASTROOESOPHAGEAL REFLUX DISEASE
     Dosage: UNK
     Route: 048
  20. ROZECLART [Concomitant]
     Indication: CHOLANGITIS CHRONIC
     Dosage: UNK
     Route: 042
  21. PANITUMUMAB [Suspect]
     Dosage: 6 MG/KG, Q2WK
     Route: 041
     Dates: start: 20110628
  22. CORTICOSTEROIDS [Concomitant]
     Indication: PROPHYLAXIS
     Dosage: UNK
     Route: 065
  23. OXYCONTIN [Concomitant]
     Dosage: UNK
     Route: 048
  24. PROCHLORPERAZINE [Concomitant]
     Dosage: UNK
     Route: 042
  25. PANITUMUMAB [Suspect]
     Dosage: 6 MG/KG, Q2WK
     Route: 041
     Dates: start: 20101208, end: 20101208
  26. PROTECADIN [Concomitant]
     Dosage: UNK
     Route: 048
  27. PANITUMUMAB [Suspect]
     Dosage: 6 MG/KG, Q2WK
     Route: 041
     Dates: start: 20101027, end: 20101027
  28. FLUOROURACIL [Concomitant]
     Indication: COLORECTAL CANCER
     Route: 040
     Dates: start: 20100908, end: 20110306
  29. FENTANYL-100 [Concomitant]
     Dosage: UNK
     Route: 062
  30. CEFDINIR [Concomitant]
     Indication: CHOLANGITIS CHRONIC
     Dosage: UNK
     Route: 048
  31. MORPHINE HCL ELIXIR [Concomitant]
     Dosage: UNK
     Route: 048
  32. HIRUDOID [Concomitant]
     Dosage: UNK
     Route: 062

REACTIONS (4)
  - DEATH [None]
  - RASH MACULO-PAPULAR [None]
  - CHOLANGITIS [None]
  - PRURITUS [None]
